FAERS Safety Report 8010909-8 (Version None)
Quarter: 2011Q4

REPORT INFORMATION
  Report Type: 
  Country: None (occurrence: None)
  Receive Date: 20111228
  Receipt Date: 20111220
  Transmission Date: 20120403
  Serious: No
  Sender: FDA-Public Use
  Company Number: US-US-EMD SERONO, INC.-7101669

PATIENT
  Sex: Female

DRUGS (5)
  1. XANAX [Concomitant]
     Indication: ANXIETY
  2. PRAVASTATIN [Concomitant]
     Indication: BLOOD CHOLESTEROL INCREASED
  3. CITALOPRAM HYDROBROMIDE [Concomitant]
     Indication: DEPRESSION
  4. REBIF [Suspect]
     Indication: MULTIPLE SCLEROSIS
     Route: 058
     Dates: start: 20100802
  5. TOPROL-XL [Concomitant]
     Indication: HYPERTENSION

REACTIONS (6)
  - INJECTION SITE ATROPHY [None]
  - ANGER [None]
  - INJECTION SITE PAIN [None]
  - DEAFNESS TRANSITORY [None]
  - INFLUENZA LIKE ILLNESS [None]
  - VERTIGO [None]
